FAERS Safety Report 5164191-X (Version None)
Quarter: 2006Q4

REPORT INFORMATION
  Report Type: 
  Country: None (occurrence: None)
  Receive Date: 20060918
  Receipt Date: 20051013
  Transmission Date: 20070319
  Serious: Yes (Other)
  Sender: FDA-Public Use
  Company Number: US-JNJFOC-20050806433

PATIENT
  Age: 42 Year
  Sex: Male
  Weight: 113.3993 kg

DRUGS (5)
  1. TOPAMAX [Suspect]
     Indication: PARTIAL SEIZURES
     Dosage: SEE IMAGE
     Route: 048
     Dates: start: 20050401, end: 20050701
  2. TOPAMAX [Suspect]
     Indication: PARTIAL SEIZURES
     Dosage: SEE IMAGE
     Route: 048
     Dates: start: 20010101
  3. TOPAMAX [Suspect]
     Indication: PARTIAL SEIZURES
     Dosage: SEE IMAGE
     Route: 048
     Dates: start: 20010912
  4. TOPAMAX [Suspect]
     Indication: PARTIAL SEIZURES
     Dosage: SEE IMAGE
     Route: 048
     Dates: start: 20050601
  5. TOPAMAX [Suspect]
     Indication: PARTIAL SEIZURES
     Dosage: SEE IMAGE
     Route: 048
     Dates: start: 20050701

REACTIONS (3)
  - CONVULSION [None]
  - LIMB INJURY [None]
  - PSYCHOTIC DISORDER [None]
